FAERS Safety Report 8005307-7 (Version None)
Quarter: 2011Q4

REPORT INFORMATION
  Report Type: 
  Country: None (occurrence: None)
  Receive Date: 20111223
  Receipt Date: 20111213
  Transmission Date: 20120403
  Serious: Yes (Hospitalization)
  Sender: FDA-Public Use
  Company Number: FR-SANOFI-AVENTIS-2011SA083141

PATIENT
  Age: 46 Year
  Sex: Male

DRUGS (11)
  1. MORPHINE SULFATE [Concomitant]
     Dates: start: 20110301
  2. XANAX [Concomitant]
  3. ASPIRIN [Concomitant]
     Dates: start: 20110301
  4. ERLOTINIB HYDROCHLORIDE [Suspect]
     Indication: NON-SMALL CELL LUNG CANCER
     Route: 065
     Dates: start: 20111019
  5. RABEPRAZOLE SODIUM [Concomitant]
     Dates: start: 20110301
  6. MORPHINE SULFATE [Concomitant]
     Dates: start: 20110301
  7. DOCETAXEL [Suspect]
     Indication: NON-SMALL CELL LUNG CANCER
     Route: 065
     Dates: start: 20111018
  8. ROSUVASTATIN [Concomitant]
     Dates: start: 20110301
  9. ACETAMINOPHEN [Concomitant]
     Dates: start: 20110301
  10. STABLON [Concomitant]
  11. FLUTICASONE PROPIONATE/SALMETEROL [Concomitant]
     Dates: start: 20110301

REACTIONS (1)
  - GENERAL PHYSICAL HEALTH DETERIORATION [None]
